FAERS Safety Report 5657982-X (Version None)
Quarter: 2008Q1

REPORT INFORMATION
  Report Type: 
  Country: None (occurrence: None)
  Receive Date: 20080310
  Receipt Date: 20080303
  Transmission Date: 20080703
  Serious: Yes (Other)
  Sender: FDA-Public Use
  Company Number: PHRM2008FR00983

PATIENT
  Sex: Male

DRUGS (3)
  1. KEPPRA [Concomitant]
     Indication: CONVULSION
     Route: 048
     Dates: start: 20070101
  2. TRILEPTAL [Suspect]
     Indication: CONVULSION
     Dosage: 300 MG, BID
     Route: 048
     Dates: start: 20070101, end: 20080201
  3. TRILEPTAL [Suspect]
     Dosage: 150 MG  + 225 MG/DAY
     Route: 048
     Dates: start: 20080201

REACTIONS (3)
  - MYOCLONIC EPILEPSY [None]
  - PETIT MAL EPILEPSY [None]
  - SOMNOLENCE [None]
